FAERS Safety Report 21325660 (Version 1)
Quarter: 2022Q3

REPORT INFORMATION
  Report Type: Spontaneous
  Country: None (occurrence: GB)
  Receive Date: 20220912
  Receipt Date: 20220912
  Transmission Date: 20221027
  Serious: Yes (Other)
  Sender: FDA-Public Use
  Company Number: GB-Ascend Therapeutics US, LLC-2132788

PATIENT
  Age: 53 Year
  Sex: Female
  Weight: 70 kg

DRUGS (4)
  1. ESTROGEL [Suspect]
     Active Substance: ESTRADIOL
     Indication: Menopause
     Route: 062
     Dates: start: 20220801
  2. ESTROGEL [Suspect]
     Active Substance: ESTRADIOL
  3. ESTRADIOL [Suspect]
     Active Substance: ESTRADIOL
     Route: 062
     Dates: start: 20220801
  4. UTROGESTAN [Concomitant]
     Active Substance: PROGESTERONE
     Route: 065

REACTIONS (5)
  - Hot flush [Unknown]
  - Vulvovaginal pruritus [Not Recovered/Not Resolved]
  - Headache [Unknown]
  - Product packaging issue [None]
  - Drug ineffective [None]

NARRATIVE: CASE EVENT DATE: 20220101
